FAERS Safety Report 7570121-3 (Version None)
Quarter: 2011Q2

REPORT INFORMATION
  Report Type: 
  Country: None (occurrence: None)
  Receive Date: 20110620
  Receipt Date: 20110609
  Transmission Date: 20111010
  Serious: Yes (Death, Hospitalization, Other)
  Sender: FDA-Public Use
  Company Number: 2009AC000316

PATIENT

DRUGS (51)
  1. DIGOXIN [Suspect]
     Indication: CARDIAC FAILURE CONGESTIVE
     Dosage: 0.125 MG, QD, PO
     Route: 048
     Dates: start: 20030301, end: 20051201
  2. WELLBUTRIN [Concomitant]
  3. VERSED [Concomitant]
  4. CIPRODEX [Concomitant]
  5. KETOROLAC TROMETHAMINE [Concomitant]
  6. SMZ-TMP [Concomitant]
  7. FLEXERIL [Concomitant]
  8. ASPIRIN [Concomitant]
  9. NEURONTIN [Concomitant]
  10. PLAVIX [Concomitant]
  11. LIDOCAINE [Concomitant]
  12. NITROGLYCERIN [Concomitant]
  13. CYCLOBENZAPR [Concomitant]
  14. BUPROPION HYDROCHLORIDE [Concomitant]
  15. GABAPENTIN [Concomitant]
  16. MAGNESIUM OXIDE [Concomitant]
  17. DIGOXIN [Suspect]
     Indication: CARDIAC FAILURE CONGESTIVE
     Dosage: 0.25 MG, QD, PO
     Route: 048
     Dates: start: 20051201, end: 20061001
  18. ALBUTEROL SULFATE AUTOHALER [Concomitant]
  19. AMITRIPTYLINE HCL [Concomitant]
  20. CEPHADROXIL [Concomitant]
  21. FUROSEMIDE [Concomitant]
  22. LISINOPRIL [Concomitant]
  23. TYLENOL-500 [Concomitant]
  24. PLAVIX [Concomitant]
  25. HYDROCQ [Concomitant]
  26. MORPHINE SULFATE [Concomitant]
  27. PEPCID [Concomitant]
  28. ACETAMINOPHEN [Concomitant]
  29. HYDROCO [Concomitant]
  30. ARICEPT [Concomitant]
  31. KAYEXALATE [Concomitant]
  32. DIGOXIN [Suspect]
     Indication: CARDIAC FAILURE CONGESTIVE
     Dosage: 0.25 MG, QD, PO
     Route: 048
     Dates: start: 20061201, end: 20070101
  33. HYDROCODONE BITARTRATE [Concomitant]
  34. METOPROLOL TARTRATE [Concomitant]
  35. SIMVASTATIN [Concomitant]
  36. ATROVENT [Concomitant]
  37. TRAZODONE HCL [Concomitant]
  38. PHENERGAN HCL [Concomitant]
  39. AMBIEN [Concomitant]
  40. DIGOXIN [Suspect]
     Indication: CARDIAC FAILURE CONGESTIVE
     Dosage: 0.125 MG, QD, PO
     Route: 048
     Dates: start: 20061001, end: 20061201
  41. ARICEPT [Concomitant]
  42. SIMVASTATIN [Concomitant]
  43. DOXYCYCL [Concomitant]
  44. LOMOTIL [Concomitant]
  45. LORTAB [Concomitant]
  46. PERCOCET [Concomitant]
  47. DIGOXIN [Suspect]
     Indication: CARDIAC FAILURE CONGESTIVE
     Dosage: 0.25 MG, QD, PO
     Route: 048
     Dates: start: 20020301, end: 20030301
  48. PHENERGAN HCL [Concomitant]
  49. KLOR-CON [Concomitant]
  50. BUMEX [Concomitant]
  51. AUGMENTIN '125' [Concomitant]

REACTIONS (62)
  - HEPATIC ENZYME INCREASED [None]
  - POST-TRAUMATIC STRESS DISORDER [None]
  - HEADACHE [None]
  - VOMITING [None]
  - HYPERKALAEMIA [None]
  - MUSCULOSKELETAL PAIN [None]
  - PURULENT DISCHARGE [None]
  - FATIGUE [None]
  - HYPERTENSION [None]
  - SEPSIS [None]
  - MYALGIA [None]
  - HYPOTENSION [None]
  - BLOOD UREA INCREASED [None]
  - BLOOD MAGNESIUM DECREASED [None]
  - RESPIRATORY ARREST [None]
  - PULSE ABSENT [None]
  - LOSS OF CONSCIOUSNESS [None]
  - AORTIC ANEURYSM [None]
  - DEHYDRATION [None]
  - BLOOD GLUCOSE INCREASED [None]
  - ANXIETY [None]
  - CARDIOACTIVE DRUG LEVEL ABOVE THERAPEUTIC [None]
  - VENTRICULAR EXTRASYSTOLES [None]
  - GAIT DISTURBANCE [None]
  - CARDIAC FAILURE CONGESTIVE [None]
  - CONFUSIONAL STATE [None]
  - HAEMATOMA [None]
  - WEIGHT DECREASED [None]
  - PNEUMONIA [None]
  - BLOOD CREATININE INCREASED [None]
  - OESOPHAGEAL SPASM [None]
  - HYPERTENSIVE HEART DISEASE [None]
  - AGGRESSION [None]
  - INTERMITTENT CLAUDICATION [None]
  - URINARY TRACT INFECTION [None]
  - CORONARY ARTERY DISEASE [None]
  - CARDIOACTIVE DRUG LEVEL BELOW THERAPEUTIC [None]
  - ILEUS PARALYTIC [None]
  - ERYTHEMA [None]
  - PAIN IN EXTREMITY [None]
  - ASTHENIA [None]
  - DEMENTIA [None]
  - INSOMNIA [None]
  - AMNESIA [None]
  - ABDOMINAL PAIN [None]
  - CHEST DISCOMFORT [None]
  - WEIGHT INCREASED [None]
  - SKIN CANCER [None]
  - SYNCOPE [None]
  - MULTI-ORGAN FAILURE [None]
  - DISORIENTATION [None]
  - PULMONARY MASS [None]
  - DRUG LEVEL FLUCTUATING [None]
  - SLEEP APNOEA SYNDROME [None]
  - BLOOD ELECTROLYTES ABNORMAL [None]
  - ORTHOPNOEA [None]
  - CARDIAC FAILURE CHRONIC [None]
  - DYSPNOEA [None]
  - MYOCARDIAL INFARCTION [None]
  - ATRIAL FIBRILLATION [None]
  - APHASIA [None]
  - OEDEMA PERIPHERAL [None]
